FAERS Safety Report 24028471 (Version 1)
Quarter: 2024Q2

REPORT INFORMATION
  Report Type: Spontaneous
  Country: US (occurrence: US)
  Receive Date: 20240628
  Receipt Date: 20240628
  Transmission Date: 20240716
  Serious: Yes (Other)
  Sender: FDA-Public Use
  Company Number: US-VEROBIOTECH-2024USVEROSPO00124

PATIENT
  Age: 43 Year

DRUGS (1)
  1. GENOSYL [Suspect]
     Active Substance: NITRIC OXIDE
     Indication: Product used for unknown indication
     Dosage: 5 PPM

REACTIONS (3)
  - Mean arterial pressure decreased [Unknown]
  - Oxygen saturation decreased [Unknown]
  - Underdose [Unknown]
